FAERS Safety Report 17975879 (Version 2)
Quarter: 2020Q3

REPORT INFORMATION
  Report Type: Spontaneous
  Country: US (occurrence: US)
  Receive Date: 20200702
  Receipt Date: 20200707
  Transmission Date: 20201103
  Serious: No
  Sender: FDA-Public Use
  Company Number: US-JNJFOC-20200640806

PATIENT

DRUGS (1)
  1. IMODIUM [Suspect]
     Active Substance: LOPERAMIDE HYDROCHLORIDE
     Indication: IRRITABLE BOWEL SYNDROME
     Dosage: SINCE 7 YEARS, 1 IMODIUM A DAY
     Route: 065
     Dates: start: 20131020

REACTIONS (2)
  - Inappropriate schedule of product administration [Unknown]
  - Product packaging difficult to open [Unknown]
